FAERS Safety Report 14332814 (Version 2)
Quarter: 2018Q1

REPORT INFORMATION
  Report Type: Spontaneous
  Country: US (occurrence: US)
  Receive Date: 20171228
  Receipt Date: 20180205
  Transmission Date: 20180509
  Serious: Yes (Hospitalization)
  Sender: FDA-Public Use
  Company Number: US-NOVOPROD-578614

PATIENT
  Age: 61 Year
  Sex: Male
  Weight: 65 kg

DRUGS (2)
  1. LEVEMIR [Suspect]
     Active Substance: INSULIN DETEMIR
     Indication: TYPE 1 DIABETES MELLITUS
     Dosage: 9 U, QD (5 UNITS IN THE MORNING AND 4 UNITS AT NIGHT)
     Route: 058
     Dates: start: 2007
  2. NOVOLOG [Suspect]
     Active Substance: INSULIN ASPART
     Indication: TYPE 1 DIABETES MELLITUS
     Dosage: SLIDING SCALE
     Route: 058

REACTIONS (2)
  - Diabetic ketoacidosis [Recovering/Resolving]
  - Device failure [Unknown]

NARRATIVE: CASE EVENT DATE: 20171125
